FAERS Safety Report 9129629 (Version 2)
Quarter: 2013Q2

REPORT INFORMATION
  Report Type: Spontaneous
  Country: US (occurrence: US)
  Receive Date: 20130228
  Receipt Date: 20130430
  Transmission Date: 20140414
  Serious: Yes (Other)
  Sender: FDA-Public Use
  Company Number: US-ELI_LILLY_AND_COMPANY-US201302005584

PATIENT
  Age: 83 Year
  Sex: Male
  Weight: 74.38 kg

DRUGS (1)
  1. CYMBALTA [Suspect]
     Indication: DEPRESSION
     Dosage: 60 MG, BID
     Dates: end: 20130301

REACTIONS (5)
  - Blister [Recovering/Resolving]
  - Skin exfoliation [Recovering/Resolving]
  - Rash pruritic [Recovering/Resolving]
  - Haemorrhage [Recovering/Resolving]
  - Visual impairment [Unknown]
